FAERS Safety Report 6863909-5 (Version None)
Quarter: 2010Q3

REPORT INFORMATION
  Report Type: 
  Country: None (occurrence: None)
  Receive Date: 20100721
  Receipt Date: 20080310
  Transmission Date: 20110219
  Serious: No
  Sender: FDA-Public Use
  Company Number: US-PFIZER INC-2008023082

PATIENT
  Sex: Female
  Weight: 89.5 kg

DRUGS (8)
  1. CHANTIX [Suspect]
     Indication: SMOKING CESSATION THERAPY
     Dates: start: 20080101, end: 20080101
  2. NEURONTIN [Concomitant]
  3. CALCIUM [Concomitant]
  4. CHONDROITIN/GLUCOSAMINE [Concomitant]
  5. REQUIP [Concomitant]
  6. FEMHRT [Concomitant]
  7. ACETYLSALICYLIC ACID [Concomitant]
  8. MULTI-VITAMINS [Concomitant]

REACTIONS (1)
  - NAUSEA [None]
